FAERS Safety Report 9052227 (Version 2)
Quarter: 2013Q1

REPORT INFORMATION
  Report Type: Spontaneous
  Country: US (occurrence: US)
  Receive Date: 20130206
  Receipt Date: 20130211
  Transmission Date: 20140127
  Serious: Yes (Hospitalization)
  Sender: FDA-Public Use
  Company Number: PHEH2013US003030

PATIENT
  Sex: Female
  Weight: 125.17 kg

DRUGS (6)
  1. GILENYA [Suspect]
     Indication: MULTIPLE SCLEROSIS
     Dosage: 0.5 MG, QD
     Route: 048
     Dates: start: 20130111
  2. METHYLPREDNISOLONE [Concomitant]
     Route: 042
  3. CARBAMAZEPINE [Concomitant]
     Dosage: 200 TID (UNITS UNKNOWN)
  4. VYVANSE [Concomitant]
     Dosage: 50 MG, DAILY
  5. HYDROCODONE [Concomitant]
     Dosage: 5/325
  6. INDORAMIN [Concomitant]
     Dosage: 40X(1 WK), 30X(1 WK) + 20 (1 WK)
     Route: 048

REACTIONS (1)
  - Gait disturbance [Recovering/Resolving]
